FAERS Safety Report 7744906-4 (Version None)
Quarter: 2011Q3

REPORT INFORMATION
  Report Type: 
  Country: None (occurrence: None)
  Receive Date: 20110913
  Receipt Date: 20110902
  Transmission Date: 20111222
  Serious: Yes (Hospitalization)
  Sender: FDA-Public Use
  Company Number: US-BIOGENIDEC-2008BI030088

PATIENT
  Age: 29 Year
  Sex: Female
  Weight: 104 kg

DRUGS (9)
  1. BACLOFEN [Concomitant]
  2. PERCOCET [Concomitant]
  3. PROTONIX [Concomitant]
  4. DILAUDID [Concomitant]
  5. VICODIN [Concomitant]
  6. LYRICA [Concomitant]
  7. TYSABRI [Suspect]
     Indication: MULTIPLE SCLEROSIS
     Route: 042
     Dates: start: 20080514, end: 20081105
  8. ZOLOFT [Concomitant]
  9. CYMBALTA [Concomitant]

REACTIONS (16)
  - MALAISE [None]
  - SOMNOLENCE [None]
  - PNEUMONIA [None]
  - LEUKOCYTOSIS [None]
  - ABDOMINAL PAIN UPPER [None]
  - OCULAR HYPERAEMIA [None]
  - HYPERSENSITIVITY [None]
  - CLUMSINESS [None]
  - TOXIC ENCEPHALOPATHY [None]
  - FALL [None]
  - CONTUSION [None]
  - MOBILITY DECREASED [None]
  - URINARY TRACT INFECTION [None]
  - DYSKINESIA [None]
  - MEMORY IMPAIRMENT [None]
  - DYSURIA [None]
